FAERS Safety Report 15012489 (Version 2)
Quarter: 2018Q4

REPORT INFORMATION
  Report Type: Spontaneous
  Country: US (occurrence: US)
  Receive Date: 20180614
  Receipt Date: 20181029
  Transmission Date: 20190204
  Serious: Yes (Hospitalization, Disabling, Other)
  Sender: FDA-Public Use
  Company Number: US-JNJFOC-20180613650

PATIENT
  Age: 58 Year
  Sex: Male

DRUGS (1)
  1. INVOKANA [Suspect]
     Active Substance: CANAGLIFLOZIN
     Indication: TYPE 2 DIABETES MELLITUS
     Route: 048
     Dates: start: 20140517

REACTIONS (5)
  - Osteomyelitis [Unknown]
  - Limb amputation [Unknown]
  - Cellulitis [Unknown]
  - Diabetic foot [Unknown]
  - Gas gangrene [Unknown]

NARRATIVE: CASE EVENT DATE: 2017
